FAERS Safety Report 6073657-X (Version None)
Quarter: 2009Q1

REPORT INFORMATION
  Report Type: 
  Country: None (occurrence: None)
  Receive Date: 20090211
  Receipt Date: 20090130
  Transmission Date: 20090719
  Serious: Yes (Death)
  Sender: FDA-Public Use
  Company Number: US-TYCO HEALTHCARE/MALLINCKRODT-T200900206

PATIENT
  Age: 55 Year
  Sex: Female

DRUGS (2)
  1. OXYCODONE HCL EXTENDED-RELEASE [Suspect]
  2. AMITRIPTYLINE HCL [Suspect]

REACTIONS (1)
  - CARDIO-RESPIRATORY ARREST [None]
